FAERS Safety Report 16775174 (Version 2)
Quarter: 2019Q3

REPORT INFORMATION
  Report Type: Spontaneous
  Country: NL (occurrence: NL)
  Receive Date: 20190905
  Receipt Date: 20190918
  Transmission Date: 20191005
  Serious: Yes (Other)
  Sender: FDA-Public Use
  Company Number: NL-TEVA-2019-NL-1104259

PATIENT
  Sex: Female
  Weight: 86 kg

DRUGS (8)
  1. TRAVOPROST. [Suspect]
     Active Substance: TRAVOPROST
     Indication: INTRAOCULAR PRESSURE TEST
     Dosage: IN THE EVENING
  2. EUTHYROX [Concomitant]
     Active Substance: LEVOTHYROXINE SODIUM
     Indication: THYROID DISORDER
  3. SALBUTAMOL [Suspect]
     Active Substance: ALBUTEROL
     Indication: ASTHMA
     Dosage: 500 MICROGRAM DAILY; 2 PUFFERS AFTER BREAKFAST AND 2 PUFFERS BEFORE GOING TO SLEEP, ALSO TAKES A PUF
     Route: 065
  4. VALSARTAN 80MG [Concomitant]
     Active Substance: VALSARTAN
     Indication: HYPERTENSION
  5. BRINZOLAMIDE [Suspect]
     Active Substance: BRINZOLAMIDE
     Dosage: 3 TIMES A DAY
  6. CLOPIDOGREL [Concomitant]
     Active Substance: CLOPIDOGREL BISULFATE
     Indication: TRANSIENT ISCHAEMIC ATTACK
  7. ALVESCO [Suspect]
     Active Substance: CICLESONIDE
     Indication: ASTHMA
     Dosage: 2 PUFFERS AFTER BREAKFAST AND 2 PUFFERS BEFORE GOING TO SLEEP
  8. HYLAN OOGDRUPPELS 0,15MG.ML [Suspect]
     Active Substance: CARBOXYPOLYMETHYLENE\HYALURONATE SODIUM
     Indication: BLEPHARITIS
     Dosage: 3 TIMES A DAY

REACTIONS (4)
  - Cataract [Unknown]
  - Tinnitus [Unknown]
  - Intraocular pressure increased [Unknown]
  - Blepharitis [Unknown]
